FAERS Safety Report 9336498 (Version 3)
Quarter: 2013Q3

REPORT INFORMATION
  Report Type: Report from Study
  Country: DE (occurrence: DE)
  Receive Date: 20130607
  Receipt Date: 20130926
  Transmission Date: 20140515
  Serious: Yes (Hospitalization, Other)
  Sender: FDA-Public Use
  Company Number: DE-ROCHE-1233591

PATIENT
  Age: 73 Year
  Sex: Male
  Weight: 87 kg

DRUGS (8)
  1. RITUXIMAB [Suspect]
     Indication: B-CELL LYMPHOMA
     Route: 042
     Dates: start: 200907, end: 200911
  2. RITUXIMAB [Suspect]
     Route: 042
     Dates: start: 201106, end: 201110
  3. RITUXIMAB [Suspect]
     Route: 042
     Dates: start: 201111, end: 201303
  4. CYCLOPHOSPHAMID [Concomitant]
  5. VINCRISTIN [Concomitant]
  6. DOXORUBICIN [Concomitant]
  7. DECORTIN H [Concomitant]
  8. BENDAMUSTINE [Concomitant]

REACTIONS (9)
  - Acute myeloid leukaemia [Not Recovered/Not Resolved]
  - Blast cells present [Not Recovered/Not Resolved]
  - Myelodysplastic syndrome [Recovered/Resolved]
  - Anaemia [Recovered/Resolved]
  - Neutropenia [Not Recovered/Not Resolved]
  - Thrombocytopenia [Unknown]
  - Sepsis [Not Recovered/Not Resolved]
  - Dyspnoea [Not Recovered/Not Resolved]
  - Pneumonia [Recovering/Resolving]
